FAERS Safety Report 8985616 (Version 1)
Quarter: 2012Q4

REPORT INFORMATION
  Report Type: 
  Country: US (occurrence: US)
  Receive Date: 20121226
  Receipt Date: 20121226
  Transmission Date: 20130627
  Serious: No
  Sender: FDA-Public Use
  Company Number: US-ABBOTT-12P-163-0962072-00

PATIENT
  Age: 67 Year
  Sex: Male
  Weight: 109.87 kg

DRUGS (1)
  1. LUPRON DEPOT 45 MG [Suspect]
     Indication: PROSTATE CANCER
     Route: 050

REACTIONS (1)
  - Expired drug administered [Not Recovered/Not Resolved]
